FAERS Safety Report 14930776 (Version 1)
Quarter: 2018Q2

REPORT INFORMATION
  Report Type: Spontaneous
  Country: FR (occurrence: FR)
  Receive Date: 20180523
  Receipt Date: 20180523
  Transmission Date: 20180711
  Serious: Yes (Other)
  Sender: FDA-Public Use
  Company Number: FR-MERCK KGAA-2048348

PATIENT
  Age: 49 Year
  Sex: Female

DRUGS (1)
  1. NOVOTHYROX [Suspect]
     Active Substance: LEVOTHYROXINE SODIUM
     Indication: AUTOIMMUNE THYROIDITIS
     Dates: start: 2017

REACTIONS (22)
  - Migraine [None]
  - Negative thoughts [None]
  - Decreased interest [None]
  - Decreased activity [None]
  - Affective disorder [None]
  - Muscle spasms [None]
  - Social avoidant behaviour [None]
  - Somnolence [None]
  - Crying [None]
  - Alopecia [None]
  - Insomnia [None]
  - Gastrointestinal disorder [None]
  - Libido disorder [None]
  - Nervousness [None]
  - Asthenia [None]
  - Headache [None]
  - Suicidal ideation [None]
  - Fatigue [None]
  - Depression [None]
  - Asthenia [None]
  - Anxiety [None]
  - General physical health deterioration [None]

NARRATIVE: CASE EVENT DATE: 201707
